FAERS Safety Report 13302424 (Version 7)
Quarter: 2017Q3

REPORT INFORMATION
  Report Type: Report from Study
  Country: US (occurrence: US)
  Receive Date: 20170307
  Receipt Date: 20170924
  Transmission Date: 20171127
  Serious: Yes (Hospitalization, Other)
  Sender: FDA-Public Use
  Company Number: US-BIOGEN-2017BI00366912

PATIENT
  Age: 54 Year
  Sex: Male
  Weight: 96.16 kg

DRUGS (3)
  1. ALPROLIX [Suspect]
     Active Substance: EFTRENONACOG ALFA
     Dosage: X1 WEEK POST SURGEY
     Route: 042
     Dates: start: 20161228
  2. ALPROLIX [Suspect]
     Active Substance: EFTRENONACOG ALFA
     Dosage: X1 BEFORE PICC LINE REMOVAL
     Route: 042
  3. ALPROLIX [Suspect]
     Active Substance: EFTRENONACOG ALFA
     Indication: FACTOR IX DEFICIENCY
     Route: 042
     Dates: start: 20161201

REACTIONS (6)
  - Hip surgery [Recovered/Resolved]
  - Arthropod bite [Recovered/Resolved]
  - Haemorrhage [Unknown]
  - Anaphylactic reaction [Recovered/Resolved]
  - Haemarthrosis [Unknown]
  - Oedema peripheral [Recovered/Resolved]

NARRATIVE: CASE EVENT DATE: 201612
